FAERS Safety Report 8495701-2 (Version None)
Quarter: 2012Q3

REPORT INFORMATION
  Report Type: 
  Country: None (occurrence: None)
  Receive Date: 20120709
  Receipt Date: 20120705
  Transmission Date: 20120928
  Serious: No
  Sender: FDA-Public Use
  Company Number: US-PFIZER INC-2012162378

PATIENT
  Sex: Female
  Weight: 106 kg

DRUGS (9)
  1. CELEBREX [Suspect]
     Indication: SYSTEMIC LUPUS ERYTHEMATOSUS
     Dosage: 200 MG, 2X/DAY
  2. PREDNISONE [Suspect]
     Indication: ADRENAL DISORDER
     Dosage: 20 MG, DAILY
  3. LASIX [Suspect]
     Dosage: UNK
  4. CELEBREX [Suspect]
     Indication: ARTHRALGIA
  5. OPIUM [Suspect]
     Dosage: UNK
  6. LISINOPRIL [Suspect]
     Dosage: UNK
  7. PREDNISONE [Suspect]
     Indication: SYSTEMIC LUPUS ERYTHEMATOSUS
     Dosage: 7.5 MG, DAILY
  8. ACETAMINOPHEN [Suspect]
     Indication: ARTHRALGIA
  9. ACETAMINOPHEN [Suspect]
     Indication: SYSTEMIC LUPUS ERYTHEMATOSUS
     Dosage: UNK, 2X/DAY

REACTIONS (6)
  - WEIGHT INCREASED [None]
  - DEPRESSION [None]
  - CONTUSION [None]
  - DRUG INEFFECTIVE [None]
  - SKIN ATROPHY [None]
  - INCREASED TENDENCY TO BRUISE [None]
